FAERS Safety Report 24199258 (Version 1)
Quarter: 2024Q3

REPORT INFORMATION
  Report Type: Report from Study
  Country: US (occurrence: US)
  Receive Date: 20240812
  Receipt Date: 20240812
  Transmission Date: 20241016
  Serious: Yes (Death, Other)
  Sender: ACADIA PHARMACEUTICALS
  Company Number: US-ACADIA PHARMACEUTICALS INC.-ACA-2024-PIM-003755

PATIENT
  Age: 71 Year
  Sex: Male

DRUGS (21)
  1. NUPLAZID [Suspect]
     Active Substance: PIMAVANSERIN TARTRATE
     Indication: Parkinson^s disease
     Dosage: 34 MILLIGRAM, QD
     Route: 048
     Dates: start: 202210
  2. EXELON [Concomitant]
     Active Substance: RIVASTIGMINE TARTRATE
  3. QUETIAPINE [Concomitant]
     Active Substance: QUETIAPINE
  4. MIDODRINE [Concomitant]
     Active Substance: MIDODRINE
  5. TRIAMCINOLONE [Concomitant]
     Active Substance: TRIAMCINOLONE
  6. FAMOTIDINE [Concomitant]
     Active Substance: FAMOTIDINE
  7. VITAMIN B12 [Concomitant]
     Active Substance: CYANOCOBALAMIN
  8. TAMSULOSIN [Concomitant]
     Active Substance: TAMSULOSIN
  9. CETAPHIL [CETYL ALCOHOL;PROPYLENE GLYCOL;SODIUM LAURYL SULFATE;STEARYL [Concomitant]
  10. ZEASORB [MICONAZOLE NITRATE] [Concomitant]
  11. LEXAPRO [Concomitant]
     Active Substance: ESCITALOPRAM OXALATE
  12. MYRBETRIQ [Concomitant]
     Active Substance: MIRABEGRON
  13. CICLOPIROX [Concomitant]
     Active Substance: CICLOPIROX
  14. OMEPRAZOLE [Concomitant]
     Active Substance: OMEPRAZOLE
  15. ASPIRIN [Concomitant]
     Active Substance: ASPIRIN
  16. MELATONIN [Concomitant]
     Active Substance: MELATONIN
  17. UBIQUINOL [Concomitant]
     Active Substance: UBIQUINOL
  18. PRAVASTATIN [Concomitant]
     Active Substance: PRAVASTATIN
  19. BUSPIRONE [Concomitant]
     Active Substance: BUSPIRONE HYDROCHLORIDE
  20. VITAMIN D3 [Concomitant]
     Active Substance: CHOLECALCIFEROL
  21. LUNESTA [Concomitant]
     Active Substance: ESZOPICLONE

REACTIONS (1)
  - Death [Fatal]

NARRATIVE: CASE EVENT DATE: 20240706
